FAERS Safety Report 7200207-4 (Version None)
Quarter: 2010Q4

REPORT INFORMATION
  Report Type: 
  Country: None (occurrence: None)
  Receive Date: 20101228
  Receipt Date: 20101222
  Transmission Date: 20110411
  Serious: Yes (Other)
  Sender: FDA-Public Use
  Company Number: A0901373A

PATIENT
  Age: 43 Year
  Sex: Female

DRUGS (3)
  1. NICOTINE POLACRILEX [Suspect]
     Indication: SMOKING CESSATION THERAPY
     Route: 002
  2. NICODERM CQ [Suspect]
     Indication: SMOKING CESSATION THERAPY
     Route: 062
  3. NICORETTE [Suspect]
     Indication: SMOKING CESSATION THERAPY
     Route: 002

REACTIONS (11)
  - AFFECTIVE DISORDER [None]
  - DRUG ADMINISTRATION ERROR [None]
  - MENTAL DISORDER [None]
  - MORBID THOUGHTS [None]
  - NIGHTMARE [None]
  - PAPULE [None]
  - SENSITIVITY OF TEETH [None]
  - STRESS [None]
  - SUICIDAL IDEATION [None]
  - THINKING ABNORMAL [None]
  - TOOTHACHE [None]
